FAERS Safety Report 25388222 (Version 1)
Quarter: 2025Q2

REPORT INFORMATION
  Report Type: Spontaneous
  Country: CN (occurrence: CN)
  Receive Date: 20250603
  Receipt Date: 20250603
  Transmission Date: 20250716
  Serious: No
  Sender: ALKEM
  Company Number: CN-ALKEM LABORATORIES LIMITED-CN-ALKEM-2025-02699

PATIENT
  Age: 4 Year
  Sex: Female
  Weight: 20.3 kg

DRUGS (18)
  1. LINEZOLID [Suspect]
     Active Substance: LINEZOLID
     Indication: Pneumonia
     Dosage: 10 MILLIGRAM/KILOGRAM, TID (EVERY 8 HOURS) (GLUCOSE INJECTION) (200MG) (SPECIFICATION: 300ML: 600 MG
     Route: 042
  2. VANCOMYCIN [Suspect]
     Active Substance: VANCOMYCIN
     Indication: Pneumonia
     Dosage: 0.4 MILLIGRAM/KILOGRAM, BID (TWICE DAILY) (INJECTION)
     Route: 042
  3. LORATADINE [Suspect]
     Active Substance: LORATADINE
     Indication: Cough
     Dosage: 5 MILLILITER, QD (PER DAY) (SYRUP)
     Route: 048
  4. LORATADINE [Suspect]
     Active Substance: LORATADINE
     Indication: Rhinorrhoea
     Dosage: 5 MILLIGRAM, QD (PER DAY) (TABLET)
     Route: 048
  5. LORATADINE [Suspect]
     Active Substance: LORATADINE
     Indication: Vomiting
  6. LORATADINE [Suspect]
     Active Substance: LORATADINE
     Indication: Dyspnoea
  7. LORATADINE [Suspect]
     Active Substance: LORATADINE
     Indication: Wheezing
  8. UNSPECIFIED INGREDIENT [Suspect]
     Active Substance: UNSPECIFIED INGREDIENT
     Indication: Cough
     Route: 065
  9. UNSPECIFIED INGREDIENT [Suspect]
     Active Substance: UNSPECIFIED INGREDIENT
     Indication: Rhinorrhoea
  10. HERBALS [Suspect]
     Active Substance: HERBALS
     Indication: Cough
     Route: 048
  11. HERBALS [Suspect]
     Active Substance: HERBALS
     Indication: Rhinorrhoea
  12. AZITHROMYCIN [Concomitant]
     Active Substance: AZITHROMYCIN
     Indication: Pneumonia
     Dosage: 0.2 GRAM, QD
     Route: 042
  13. AMBROXOL HYDROCHLORIDE [Concomitant]
     Active Substance: AMBROXOL HYDROCHLORIDE
     Indication: Pneumonia
     Dosage: 7.5 MILLIGRAM, BID (TWICE A DAY)
     Route: 042
  14. BUDESONIDE [Concomitant]
     Active Substance: BUDESONIDE
     Indication: Pneumonia
     Route: 065
  15. IPRATROPIUM BROMIDE [Concomitant]
     Active Substance: IPRATROPIUM BROMIDE
     Indication: Pneumonia
     Route: 065
  16. Houttuynia [Concomitant]
     Indication: Pneumonia
     Route: 065
  17. HUMAN IMMUNOGLOBULIN G [Concomitant]
     Active Substance: HUMAN IMMUNOGLOBULIN G
     Indication: Pneumonia
     Dosage: 10 GRAM, QD (EVERY 1 DAY)
     Route: 042
  18. MONTELUKAST SODIUM [Concomitant]
     Active Substance: MONTELUKAST SODIUM
     Indication: Pneumonia
     Route: 048

REACTIONS (8)
  - Hypersensitivity [Unknown]
  - Flushing [Recovered/Resolved]
  - Tongue discolouration [Recovered/Resolved]
  - Wheezing [Recovered/Resolved]
  - Vomiting [Recovered/Resolved]
  - Dyspnoea [Recovered/Resolved]
  - Therapy partial responder [Unknown]
  - Prescription drug used without a prescription [Unknown]
